FAERS Safety Report 19972855 (Version 1)
Quarter: 2021Q4

REPORT INFORMATION
  Report Type: Spontaneous
  Country: US (occurrence: US)
  Receive Date: 20211019
  Receipt Date: 20211019
  Transmission Date: 20220303
  Serious: Yes (Other)
  Sender: FDA-Public Use
  Company Number: None

PATIENT
  Age: 68 Year
  Sex: Male
  Weight: 94.5 kg

DRUGS (5)
  1. HUMALOG [Suspect]
     Active Substance: INSULIN LISPRO
     Indication: Type 1 diabetes mellitus
     Dosage: ?QUANTITY:60 60 UNITS BY PUMP D;?OTHER FREQUENCY:60 UNITS VIA INSUL;?OTHER ROUTE:INSULIN PUMP
  2. DEXCOM G6 CONTINIOUS GLUCOSE MONITOR [Concomitant]
  3. HUMALOG TANDEM INSULIN PUMP [Concomitant]
  4. ATORVASTATIN [Concomitant]
     Active Substance: ATORVASTATIN
  5. QUONAPRIL [Concomitant]

REACTIONS (2)
  - Blood glucose increased [None]
  - Drug ineffective [None]

NARRATIVE: CASE EVENT DATE: 20211009
